FAERS Safety Report 20200325 (Version 6)
Quarter: 2022Q1

REPORT INFORMATION
  Report Type: Report from Study
  Country: CA (occurrence: None)
  Receive Date: 20211217
  Receipt Date: 20220126
  Transmission Date: 20220423
  Serious: Yes (Death, Life-Threatening, Hospitalization)
  Sender: FDA-Public Use
  Company Number: CA-Eisai Medical Research-EC-2021-105127

PATIENT
  Age: 69 Year
  Sex: Male
  Weight: 52.5 kg

DRUGS (12)
  1. LENVATINIB [Suspect]
     Active Substance: LENVATINIB
     Indication: Non-small cell lung cancer metastatic
     Route: 048
     Dates: start: 20211207, end: 20211207
  2. PEMBROLIZUMAB [Suspect]
     Active Substance: PEMBROLIZUMAB
     Indication: Non-small cell lung cancer metastatic
     Route: 041
     Dates: start: 20211207, end: 20211207
  3. FOLIC ACID [Concomitant]
     Active Substance: FOLIC ACID
     Dates: start: 202106
  4. HYDROMORPHONE [Concomitant]
     Active Substance: HYDROMORPHONE
     Dates: start: 202106
  5. ACETAMINOPHEN [Concomitant]
     Active Substance: ACETAMINOPHEN
     Dates: start: 202108
  6. APIXABAN [Concomitant]
     Active Substance: APIXABAN
     Dates: start: 20210929
  7. SENOKOT [Concomitant]
     Active Substance: SENNOSIDES
     Dates: start: 202109
  8. FUROSEMIDE [Concomitant]
     Active Substance: FUROSEMIDE
     Dates: start: 202111
  9. DIGOXIN [Concomitant]
     Active Substance: DIGOXIN
     Dates: start: 20211203
  10. POTASSIUM CHLORIDE [Concomitant]
     Active Substance: POTASSIUM CHLORIDE
     Dates: start: 20211206, end: 20211209
  11. OLANZAPINE [Concomitant]
     Active Substance: OLANZAPINE
     Dates: start: 20211208, end: 20211209
  12. METOPROLOL [Concomitant]
     Active Substance: METOPROLOL
     Dates: start: 20211203

REACTIONS (1)
  - Cardiac arrest [Fatal]

NARRATIVE: CASE EVENT DATE: 20211209
